FAERS Safety Report 7171035-3 (Version None)
Quarter: 2010Q4

REPORT INFORMATION
  Report Type: 
  Country: None (occurrence: None)
  Receive Date: 20101217
  Receipt Date: 20101210
  Transmission Date: 20110411
  Serious: Yes (Other)
  Sender: FDA-Public Use
  Company Number: US-AMGEN-USASP2010007222

PATIENT

DRUGS (6)
  1. NPLATE [Suspect]
     Indication: THROMBOCYTOPENIA
     Dosage: UNK A?G, QWK
     Route: 058
     Dates: start: 20090604, end: 20090702
  2. NPLATE [Suspect]
     Indication: IDIOPATHIC THROMBOCYTOPENIC PURPURA
     Dates: start: 20090604, end: 20090703
  3. ALLOPURINOL [Concomitant]
     Dosage: UNK
     Dates: start: 20090604
  4. AMINOCAPROIC ACID [Concomitant]
     Dosage: UNK
     Dates: start: 20090611, end: 20100518
  5. QUINAPRIL HCL AND HYDROCHLOROTHIAZIDE [Concomitant]
     Dosage: UNK
     Dates: start: 20090611, end: 20091005
  6. TORSEMIDE [Concomitant]
     Dosage: UNK
     Dates: start: 20090611

REACTIONS (3)
  - BONE PAIN [None]
  - DRUG INEFFECTIVE [None]
  - METASTATIC PAIN [None]
